FAERS Safety Report 4506210-7 (Version None)
Quarter: 2004Q4

REPORT INFORMATION
  Report Type: 
  Country: None (occurrence: None)
  Receive Date: 20041025
  Receipt Date: 20040610
  Transmission Date: 20050328
  Serious: No
  Sender: FDA-Public Use
  Company Number: US-JNJFOC-20031002275

PATIENT
  Sex: Female

DRUGS (1)
  1. REMICADE [Suspect]
     Indication: DRUG USE FOR UNKNOWN INDICATION
     Dosage: , 1 IN 1 DAY, INTRAVENOUS
     Route: 042

REACTIONS (1)
  - DRUG EXPOSURE DURING PREGNANCY [None]
